FAERS Safety Report 8862392 (Version 2)
Quarter: 2012Q4

REPORT INFORMATION
  Report Type: 
  Country: IT (occurrence: IT)
  Receive Date: 20121026
  Receipt Date: 20121123
  Transmission Date: 20130627
  Serious: Yes (Hospitalization)
  Sender: FDA-Public Use
  Company Number: IT-PFIZER INC-2012260098

PATIENT
  Age: 80 Year
  Sex: Male

DRUGS (12)
  1. AMLODIPINE BESILATE [Suspect]
     Indication: HYPERTENSION ARTERIAL
     Dosage: 10 mg, daily
     Route: 048
     Dates: start: 20120101, end: 20120930
  2. AMLODIPINE BESILATE [Suspect]
     Dosage: 10 mg, daily
     Route: 048
     Dates: start: 20120101
  3. BISOPROLOL FUMARATE [Suspect]
     Indication: HYPERTENSION ARTERIAL
     Dosage: 1.25 mg, daily
     Route: 048
     Dates: start: 20120101, end: 20120930
  4. BISOPROLOL FUMARATE [Suspect]
     Dosage: UNK
  5. RAMIPRIL [Suspect]
     Indication: HYPERTENSION ARTERIAL
     Dosage: 2.5 mg, daily
     Route: 048
     Dates: start: 20120101, end: 20120930
  6. NITROGLICERINA [Suspect]
     Dosage: UNK
  7. FUROSEMIDE [Suspect]
     Indication: HYPERTENSION ARTERIAL
     Dosage: 25 mg, daily
     Route: 048
     Dates: start: 20120101, end: 20120930
  8. ALDACTONE [Suspect]
     Indication: HYPERTENSION ARTERIAL
     Dosage: 1 DF, 1x/day
     Route: 048
     Dates: start: 20120101, end: 20120930
  9. VENITRIN [Suspect]
     Indication: ISCHEMIC HEART DISEASE
     Dosage: 1 DF, UNK
     Route: 062
     Dates: start: 20120101, end: 20120930
  10. VENITRIN [Suspect]
     Dosage: UNK
  11. LANOXIN [Concomitant]
     Indication: PAROXYSMAL ATRIAL FIBRILLATION
     Dosage: UNK
  12. COUMADINE [Concomitant]
     Indication: PAROXYSMAL ATRIAL FIBRILLATION
     Dosage: UNK

REACTIONS (3)
  - Hypotension [Recovered/Resolved]
  - Syncope [Recovered/Resolved]
  - Loss of consciousness [Recovered/Resolved]
